FAERS Safety Report 10525763 (Version 1)
Quarter: 2014Q4

REPORT INFORMATION
  Report Type: Spontaneous
  Country: US (occurrence: US)
  Receive Date: 20141017
  Receipt Date: 20141017
  Transmission Date: 20150528
  Serious: Yes (Life-Threatening, Hospitalization)
  Sender: FDA-Public Use
  Company Number: PHHY2014US133336

PATIENT

DRUGS (5)
  1. OXYCODONE HYDROCHLORIDE. [Suspect]
     Active Substance: OXYCODONE HYDROCHLORIDE
     Indication: PRODUCT USED FOR UNKNOWN INDICATION
     Route: 065
  2. CARBAMAZEPINE. [Suspect]
     Active Substance: CARBAMAZEPINE
     Indication: PRODUCT USED FOR UNKNOWN INDICATION
     Route: 065
  3. ETHANOL [Suspect]
     Active Substance: ALCOHOL
     Indication: PRODUCT USED FOR UNKNOWN INDICATION
  4. NICOTINE. [Suspect]
     Active Substance: NICOTINE
     Indication: PRODUCT USED FOR UNKNOWN INDICATION
     Route: 065
  5. VERAPAMIL [Suspect]
     Active Substance: VERAPAMIL HYDROCHLORIDE
     Indication: PRODUCT USED FOR UNKNOWN INDICATION
     Route: 065

REACTIONS (31)
  - Shock [Unknown]
  - Acute kidney injury [Recovered/Resolved]
  - Metabolic acidosis [Unknown]
  - Suicide attempt [Unknown]
  - Atrioventricular block first degree [Unknown]
  - Electrocardiogram T wave inversion [Unknown]
  - Hyperglycaemia [Unknown]
  - Sedation [Unknown]
  - Blood creatinine increased [Unknown]
  - Electrocardiogram QT prolonged [Recovered/Resolved]
  - Drug withdrawal syndrome [Unknown]
  - Loss of consciousness [Unknown]
  - Acute myocardial infarction [Unknown]
  - Troponin I increased [Unknown]
  - Pulmonary oedema [Unknown]
  - Toxicity to various agents [Unknown]
  - Atelectasis [Unknown]
  - Lethargy [Unknown]
  - Blood magnesium increased [Unknown]
  - Respiratory distress [Unknown]
  - Hypoxia [Unknown]
  - Pneumonia aspiration [Unknown]
  - Drug level increased [Unknown]
  - Hypotension [Unknown]
  - Alcohol withdrawal syndrome [Unknown]
  - Hyperdynamic left ventricle [Unknown]
  - Oxygen consumption increased [Unknown]
  - Electrocardiogram ST segment depression [Unknown]
  - Overdose [Unknown]
  - Blood bicarbonate decreased [Recovered/Resolved]
  - Blood creatine phosphokinase increased [Recovered/Resolved]
